FAERS Safety Report 7938805-2 (Version None)
Quarter: 2011Q4

REPORT INFORMATION
  Report Type: 
  Country: None (occurrence: None)
  Receive Date: 20111124
  Receipt Date: 20111118
  Transmission Date: 20120403
  Serious: No
  Sender: FDA-Public Use
  Company Number: US-BIOGENIDEC-2011BI044276

PATIENT
  Sex: Female

DRUGS (2)
  1. TYSABRI [Suspect]
     Indication: MULTIPLE SCLEROSIS
     Route: 042
     Dates: start: 20061120
  2. AVONEX [Concomitant]
     Indication: MULTIPLE SCLEROSIS
     Route: 030

REACTIONS (6)
  - GASTRECTOMY [None]
  - WEIGHT GAIN POOR [None]
  - MENISCUS LESION [None]
  - DYSPEPSIA [None]
  - DRUG DELIVERY DEVICE REMOVAL [None]
  - INCISION SITE INFECTION [None]
